FAERS Safety Report 24125931 (Version 1)
Quarter: 2024Q3

REPORT INFORMATION
  Report Type: Spontaneous
  Country: FR (occurrence: FR)
  Receive Date: 20240723
  Receipt Date: 20240723
  Transmission Date: 20241017
  Serious: Yes (Other)
  Sender: BRISTOL MYERS SQUIBB
  Company Number: FR-BRISTOL-MYERS SQUIBB COMPANY-2024-114588

PATIENT
  Age: 69 Year
  Sex: Female

DRUGS (2)
  1. CAMZYOS [Suspect]
     Active Substance: MAVACAMTEN
     Indication: Product used for unknown indication
     Dosage: DOSE : 5MG AND 2.5MG;     FREQ : UNAVAILABLE
  2. CAMZYOS [Suspect]
     Active Substance: MAVACAMTEN
     Dosage: DOSE : 5MG AND 2.5MG;     FREQ : UNAVAILABLE

REACTIONS (3)
  - Dyspnoea [Unknown]
  - Aortic stenosis [Unknown]
  - Transvalvular pressure gradient increased [Unknown]
